FAERS Safety Report 5070102-8 (Version None)
Quarter: 2006Q3

REPORT INFORMATION
  Report Type: 
  Country: None (occurrence: None)
  Receive Date: 20060714
  Receipt Date: 20060407
  Transmission Date: 20061208
  Serious: No
  Sender: FDA-Public Use
  Company Number: 2006SP001594

PATIENT
  Age: 45 Year
  Sex: Female
  Weight: 67.586 kg

DRUGS (4)
  1. LUNESTA [Suspect]
     Indication: INSOMNIA
     Dosage: 3 MG;HS;ORAL
     Route: 048
     Dates: start: 20060406
  2. LEXAPRO [Concomitant]
  3. ESTRATEST [Concomitant]
  4. FLONASE [Concomitant]

REACTIONS (1)
  - MIDDLE INSOMNIA [None]
